FAERS Safety Report 23543334 (Version 1)
Quarter: 2024Q1

REPORT INFORMATION
  Report Type: Spontaneous
  Country: US (occurrence: US)
  Receive Date: 20240220
  Receipt Date: 20240220
  Transmission Date: 20240410
  Serious: Yes (Hospitalization)
  Sender: FDA-Public Use
  Company Number: US-STRIDES ARCOLAB LIMITED-2024SP002008

PATIENT
  Age: 70 Year
  Sex: Male

DRUGS (4)
  1. PREDNISOLONE [Suspect]
     Active Substance: PREDNISOLONE
     Indication: Prostate cancer metastatic
     Dosage: 20 MILLIGRAM
     Route: 065
  2. PREDNISOLONE [Suspect]
     Active Substance: PREDNISOLONE
     Dosage: 5 MILLIGRAM DAILY
     Route: 065
  3. FINASTERIDE [Concomitant]
     Active Substance: FINASTERIDE
     Indication: Prostate cancer metastatic
     Dosage: UNK
     Route: 065
  4. LEUPROLIDE [Concomitant]
     Active Substance: LEUPROLIDE
     Indication: Prostate cancer metastatic
     Dosage: 7.5 MILLIGRAM, ONE MONTH DEPOT INJECTION
     Route: 058

REACTIONS (1)
  - Hypothalamic pituitary adrenal axis suppression [Recovered/Resolved]
